FAERS Safety Report 8197802-5 (Version None)
Quarter: 2012Q1

REPORT INFORMATION
  Report Type: 
  Country: None (occurrence: None)
  Receive Date: 20120309
  Receipt Date: 20120301
  Transmission Date: 20120608
  Serious: Yes (Hospitalization)
  Sender: FDA-Public Use
  Company Number: US-BAYER-2011-074974

PATIENT
  Age: 23 Year
  Sex: Female
  Weight: 102.4 kg

DRUGS (2)
  1. YASMIN [Suspect]
     Dosage: UNK
     Route: 048
     Dates: start: 20050101
  2. MULTI-VITAMINS [Concomitant]
     Dosage: UNK
     Dates: start: 20070423

REACTIONS (4)
  - CHOLELITHIASIS [None]
  - GALLBLADDER INJURY [None]
  - INJURY [None]
  - PAIN [None]
